FAERS Safety Report 7811738-8 (Version None)
Quarter: 2011Q4

REPORT INFORMATION
  Report Type: 
  Country: None (occurrence: None)
  Receive Date: 20111013
  Receipt Date: 20111006
  Transmission Date: 20120403
  Serious: Yes (Hospitalization)
  Sender: FDA-Public Use
  Company Number: US-B.I. PHARMACEUTICALS,INC./RIDGEFIELD-2011-BP-23832BP

PATIENT
  Sex: Male

DRUGS (27)
  1. PRADAXA [Suspect]
  2. RED YEAST RICE [Concomitant]
  3. LANTUS [Concomitant]
  4. CHROMIUM CHLORIDE [Concomitant]
  5. FISH OIL [Concomitant]
  6. BUTCHER'S BROOM [Concomitant]
  7. CO Q 10 [Concomitant]
  8. NO FLUSH NIACIN [Concomitant]
  9. BROMELAIN [Concomitant]
  10. VITAMIN B6 [Concomitant]
  11. ASCORBIC ACID [Concomitant]
  12. CINNAMON [Concomitant]
  13. MULTAQ [Concomitant]
  14. FLORAGLO LUTEIN [Concomitant]
  15. VITAMIN B-12 [Concomitant]
  16. CARNIPURE [Concomitant]
  17. CARTIA XT [Concomitant]
  18. FUROSEMIDE [Concomitant]
  19. BILBERRY EXTRACT [Concomitant]
  20. GINKO [Concomitant]
  21. EL CARNITINE [Concomitant]
  22. GLUCOSAMIDE AND CHONDROITIN [Concomitant]
  23. CALCIUM CITRATE [Concomitant]
  24. VITAMIN D [Concomitant]
  25. ISOSORBIDE DINITRATE [Concomitant]
  26. BORON [Concomitant]
  27. CRANBERRY [Concomitant]

REACTIONS (2)
  - HAEMORRHAGE [None]
  - EYE DISORDER [None]
